FAERS Safety Report 25385804 (Version 1)
Quarter: 2025Q2

REPORT INFORMATION
  Report Type: Spontaneous
  Country: US (occurrence: None)
  Receive Date: 20250602
  Receipt Date: 20250602
  Transmission Date: 20250716
  Serious: Yes (Other)
  Sender: FDA-CTU
  Company Number: None

PATIENT
  Sex: Male

DRUGS (8)
  1. POMALYST [Suspect]
     Active Substance: POMALIDOMIDE
     Indication: Chemotherapy
     Dosage: FREQUENCY : DAILY;?
     Dates: start: 20221026
  2. ACYCLOVIR [Concomitant]
     Active Substance: ACYCLOVIR
  3. ASPIRIN CHW [Concomitant]
  4. CALCI UM/D3 TAB 600-800 [Concomitant]
  5. FEXOFENADINE HYDROCHLORIDE [Concomitant]
     Active Substance: FEXOFENADINE HYDROCHLORIDE
  6. FISH OIL CAP [Concomitant]
  7. VITAMIN B50 TAB COMPLEX [Concomitant]
  8. VITAMIN D3 TAB 400UNIT [Concomitant]

REACTIONS (2)
  - Neoplasm recurrence [None]
  - Therapy cessation [None]
